FAERS Safety Report 25504586 (Version 1)
Quarter: 2025Q3

REPORT INFORMATION
  Report Type: Spontaneous
  Country: GB (occurrence: GB)
  Receive Date: 20250702
  Receipt Date: 20250702
  Transmission Date: 20251021
  Serious: Yes (Death, Other)
  Sender: TORRENT PHARMA INC.
  Company Number: None

PATIENT
  Sex: Female

DRUGS (2)
  1. APIXABAN [Interacting]
     Active Substance: APIXABAN
     Indication: Atrial fibrillation
     Dosage: 5MG TWICE DAY
     Route: 065
  2. PAXLOVID [Interacting]
     Active Substance: NIRMATRELVIR\RITONAVIR
     Indication: COVID-19
     Route: 065
     Dates: start: 20250608

REACTIONS (2)
  - Labelled drug-drug interaction medication error [Unknown]
  - Epistaxis [Fatal]

NARRATIVE: CASE EVENT DATE: 20250613
